FAERS Safety Report 6180868-1 (Version None)
Quarter: 2009Q2

REPORT INFORMATION
  Report Type: 
  Country: None (occurrence: None)
  Receive Date: 20090506
  Receipt Date: 20090421
  Transmission Date: 20091009
  Serious: No
  Sender: FDA-Public Use
  Company Number: US-BAYER-200918812NA

PATIENT
  Age: 25 Year
  Sex: Female

DRUGS (1)
  1. MIRENA [Suspect]
     Indication: CONTRACEPTION
     Dosage: CONTINUOUS
     Route: 015
     Dates: start: 20080923

REACTIONS (4)
  - HYPOMENORRHOEA [None]
  - MOLLUSCUM CONTAGIOSUM [None]
  - SKIN LESION [None]
  - VAGINAL DISCHARGE [None]
